FAERS Safety Report 8157448-1 (Version None)
Quarter: 2012Q1

REPORT INFORMATION
  Report Type: 
  Country: None (occurrence: None)
  Receive Date: 20120217
  Receipt Date: 20120207
  Transmission Date: 20120608
  Serious: Yes (Death, Life-Threatening, Hospitalization, Other)
  Sender: FDA-Public Use
  Company Number: 2008AL010604

PATIENT
  Age: 64 Year
  Sex: Male
  Weight: 89.8122 kg

DRUGS (11)
  1. COZAAR [Concomitant]
  2. PROTONIX [Concomitant]
  3. PERGOLYDE [Concomitant]
  4. PLAVIX [Concomitant]
  5. ANDROGEL [Concomitant]
  6. DIGOXIN [Suspect]
     Indication: MYOCARDIAL INFARCTION
     Dosage: 0.135 MG; QD; PO
     Route: 048
     Dates: start: 20070723, end: 20070730
  7. METOPROLOL [Concomitant]
  8. COUMADIN [Concomitant]
  9. ASPIRIN [Concomitant]
  10. SIMVASTATIN [Concomitant]
  11. NITROGLYCERIN [Concomitant]

REACTIONS (26)
  - VENTRICULAR ARRHYTHMIA [None]
  - ANEURYSM [None]
  - PITUITARY TUMOUR [None]
  - ARRHYTHMIA [None]
  - HYPERKINESIA [None]
  - CORONARY ARTERY DISEASE [None]
  - MULTIPLE INJURIES [None]
  - ECONOMIC PROBLEM [None]
  - SINUS TACHYCARDIA [None]
  - VENTRICULAR EXTRASYSTOLES [None]
  - HYPERTENSION [None]
  - APPENDICITIS [None]
  - MYOCARDIAL ISCHAEMIA [None]
  - DYSKINESIA [None]
  - PROLACTINOMA [None]
  - MYOCARDIAL INFARCTION [None]
  - MENTAL DISORDER [None]
  - SECONDARY HYPOGONADISM [None]
  - CARDIAC ARREST [None]
  - EJECTION FRACTION DECREASED [None]
  - PAIN [None]
  - ANHEDONIA [None]
  - CARDIOMEGALY [None]
  - PULMONARY CONGESTION [None]
  - CARDIAC FAILURE CONGESTIVE [None]
  - ABDOMINAL PAIN UPPER [None]
